FAERS Safety Report 9636337 (Version 3)
Quarter: 2013Q4

REPORT INFORMATION
  Report Type: Spontaneous
  Country: CZ (occurrence: CZ)
  Receive Date: 20131021
  Receipt Date: 20131129
  Transmission Date: 20140711
  Serious: Yes (Hospitalization)
  Sender: FDA-Public Use
  Company Number: CZ-CELGENEUS-217-21880-13101431

PATIENT
  Age: 81 Year
  Sex: Male
  Weight: 75 kg

DRUGS (40)
  1. REVLIMID [Suspect]
     Indication: PLASMA CELL MYELOMA
     Route: 048
     Dates: start: 20130423
  2. REVLIMID [Suspect]
     Route: 048
     Dates: end: 20131009
  3. MLN9708/PLACEBO [Suspect]
     Indication: PLASMA CELL MYELOMA
     Route: 048
     Dates: start: 20130423
  4. MLN9708/PLACEBO [Suspect]
     Route: 048
     Dates: end: 20131009
  5. DEXAMETHASONE [Suspect]
     Indication: PLASMA CELL MYELOMA
     Route: 048
     Dates: start: 20130423
  6. DEXAMETHASONE [Suspect]
     Route: 048
     Dates: end: 20131009
  7. DEXAMETHASONE [Suspect]
     Route: 065
     Dates: start: 20131022
  8. DEXAMETHASONE [Suspect]
     Dosage: 20 MILLIGRAM
     Route: 048
     Dates: start: 20131009, end: 20131012
  9. DEXAMETHASONE [Suspect]
     Dosage: 20 MILLIGRAM
     Route: 048
     Dates: start: 20131018, end: 20131021
  10. LACIDIPINE [Concomitant]
     Indication: HYPERTENSION
     Dosage: 4 MILLIGRAM
     Route: 048
     Dates: start: 2006
  11. METOPROLOL SUCCINATE [Concomitant]
     Indication: HYPERTENSION
     Dosage: 200 MILLIGRAM
     Route: 048
     Dates: start: 201101
  12. OMEPRAZOLE [Concomitant]
     Indication: PROPHYLAXIS
     Dosage: 40 MILLIGRAM
     Route: 048
     Dates: start: 20130423
  13. NADROPARIN CALCIUM [Concomitant]
     Indication: THROMBOSIS PROPHYLAXIS
     Dosage: .8 MILLILITER
     Route: 058
     Dates: start: 20130423
  14. NADROPARIN CALCIUM [Concomitant]
     Dosage: .4 MILLILITER
     Route: 058
     Dates: start: 20131008, end: 20131013
  15. ACICLOVIR [Concomitant]
     Indication: PROPHYLAXIS
     Dosage: 400 MILLIGRAM
     Route: 048
     Dates: start: 20130423
  16. SUMETROLIM [Concomitant]
     Indication: INFECTION PROPHYLAXIS
     Dosage: 480 MILLIGRAM
     Route: 048
     Dates: start: 20130423
  17. BUPRENORPHINE [Concomitant]
     Indication: MUSCULOSKELETAL PAIN
     Dosage: 840 MICROGRAM
     Route: 062
     Dates: start: 20130903, end: 20130909
  18. BUPRENORPHINE [Concomitant]
     Dosage: 840 MICROGRAM
     Route: 062
     Dates: start: 20130924, end: 20131007
  19. BUPRENORPHINE [Concomitant]
     Dosage: 1260 MICROGRAM
     Route: 062
     Dates: start: 20131008
  20. OXYCODONE HYDROCHLORIDE [Concomitant]
     Indication: MUSCULOSKELETAL PAIN
     Dosage: 80 MILLIGRAM
     Route: 048
     Dates: start: 20130910, end: 20130923
  21. PARACETAMOL [Concomitant]
     Indication: MUSCULOSKELETAL PAIN
     Dosage: 3 GRAM
     Route: 048
     Dates: start: 20130910, end: 20131007
  22. IBANDRONIC ACID [Concomitant]
     Indication: PROPHYLAXIS
     Route: 041
     Dates: start: 20130910, end: 20130910
  23. FILGRASTIM [Concomitant]
     Indication: PROPHYLAXIS
     Route: 058
     Dates: start: 20130924, end: 20131002
  24. EPOETIN ALFA [Concomitant]
     Indication: PRODUCT USED FOR UNKNOWN INDICATION
     Dosage: 40000 IU (INTERNATIONAL UNIT)
     Route: 058
     Dates: start: 20130924, end: 20131002
  25. MEGESTROL ACETATE [Concomitant]
     Indication: PRODUCT USED FOR UNKNOWN INDICATION
     Dosage: 20 MILLILITER
     Route: 048
     Dates: start: 20131009, end: 20131023
  26. AUGMENTIN [Concomitant]
     Indication: PRODUCT USED FOR UNKNOWN INDICATION
     Dosage: 1000/200
     Route: 041
     Dates: start: 20131008, end: 20131015
  27. HYLAK FORTE [Concomitant]
     Indication: PROPHYLAXIS
     Dosage: 6 MILLILITER
     Route: 048
     Dates: start: 20131008, end: 20131018
  28. LACTULOSUM [Concomitant]
     Indication: PROPHYLAXIS
     Route: 048
     Dates: start: 20131008, end: 20131008
  29. LACTULOSUM [Concomitant]
     Route: 048
     Dates: start: 20131012, end: 20131012
  30. RED BLOOD CELLS [Concomitant]
     Indication: PRODUCT USED FOR UNKNOWN INDICATION
     Route: 041
     Dates: start: 20131009, end: 20131009
  31. RED BLOOD CELLS [Concomitant]
     Route: 041
     Dates: start: 20131021, end: 20131021
  32. ELECTROLYTE SOLUTIONS [Concomitant]
     Indication: PROPHYLAXIS AGAINST DEHYDRATION
     Dosage: 1000 MILLILITER
     Route: 041
     Dates: start: 20131008, end: 20131011
  33. ELECTROLYTE SOLUTIONS [Concomitant]
     Dosage: 500 MILLILITER
     Route: 041
     Dates: start: 20131012, end: 20131013
  34. ELECTROLYTE SOLUTIONS [Concomitant]
     Dosage: 1000 MILLILITER
     Route: 041
     Dates: start: 20131014, end: 20131023
  35. MONOSODIUM PHOSPHATE [Concomitant]
     Indication: PRODUCT USED FOR UNKNOWN INDICATION
     Route: 041
     Dates: start: 20131014, end: 20131014
  36. CALTRATE PLUS [Concomitant]
     Indication: PRODUCT USED FOR UNKNOWN INDICATION
     Dosage: 600 MILLIGRAM
     Route: 048
     Dates: start: 20131018, end: 20131020
  37. ALLOPURINOL [Concomitant]
     Indication: PRODUCT USED FOR UNKNOWN INDICATION
     Dosage: 100 MILLIGRAM
     Route: 048
     Dates: start: 20131018
  38. INSULIN [Concomitant]
     Indication: HYPERGLYCAEMIA
     Dosage: 6 IU (INTERNATIONAL UNIT)
     Route: 058
     Dates: start: 20131018, end: 20131019
  39. ONDANSETROM [Concomitant]
     Indication: PROPHYLAXIS OF NAUSEA AND VOMITING
     Dosage: 16 MILLIGRAM
     Route: 048
     Dates: start: 20131022, end: 20131022
  40. ONDANSETROM [Concomitant]
     Indication: PROPHYLAXIS OF NAUSEA AND VOMITING

REACTIONS (3)
  - Pathological fracture [Recovered/Resolved with Sequelae]
  - Plasma cell myeloma [Recovered/Resolved with Sequelae]
  - Infection [Not Recovered/Not Resolved]
